FAERS Safety Report 9419224 (Version 2)
Quarter: 2013Q3

REPORT INFORMATION
  Report Type: Spontaneous
  Country: FR (occurrence: FR)
  Receive Date: 20130725
  Receipt Date: 20130812
  Transmission Date: 20140515
  Serious: Yes (Hospitalization)
  Sender: FDA-Public Use
  Company Number: FR-NOVOPROD-383197

PATIENT
  Age: 56 Year
  Sex: Male
  Weight: 106 kg

DRUGS (8)
  1. VICTOZA [Suspect]
     Indication: TYPE 2 DIABETES MELLITUS
     Dosage: 0.6 MG, QD
     Route: 058
     Dates: start: 20120509, end: 20120628
  2. VICTOZA [Suspect]
     Dosage: 1.2 MG, QD
     Route: 058
     Dates: start: 20120628, end: 20121016
  3. VICTOZA [Suspect]
     Dosage: 1.8 MG, QD
     Route: 058
     Dates: start: 20121016, end: 20130416
  4. DIAMICRON [Concomitant]
     Route: 048
     Dates: start: 20120509
  5. METFORMINE ARROW [Concomitant]
     Dosage: 500 MG, QD
     Route: 065
  6. METFORMINE ARROW [Concomitant]
     Dosage: 2000 MG, QD
     Route: 065
     Dates: start: 20120509, end: 20130416
  7. LANTUS [Concomitant]
     Dosage: UNK
     Route: 058
  8. TRIATEC                            /00116401/ [Concomitant]
     Dosage: UNK
     Route: 048
     Dates: start: 20120509, end: 20130416

REACTIONS (1)
  - Medullary thyroid cancer [Recovered/Resolved]
